FAERS Safety Report 11755059 (Version 1)
Quarter: 2015Q4

REPORT INFORMATION
  Report Type: Report from Study
  Country: GB (occurrence: GB)
  Receive Date: 20151119
  Receipt Date: 20151119
  Transmission Date: 20160304
  Serious: Yes (Other)
  Sender: FDA-Public Use
  Company Number: GB-CELGENE-167-21880-13084229

PATIENT
  Age: 67 Year
  Sex: Female

DRUGS (4)
  1. REVLIMID [Suspect]
     Active Substance: LENALIDOMIDE
     Indication: PLASMA CELL MYELOMA
     Route: 048
     Dates: start: 20121116
  2. VORINOSTAT [Suspect]
     Active Substance: VORINOSTAT
     Indication: PLASMA CELL MYELOMA
     Route: 048
     Dates: start: 20121116
  3. VORINOSTAT [Suspect]
     Active Substance: VORINOSTAT
     Route: 048
  4. REVLIMID [Suspect]
     Active Substance: LENALIDOMIDE
     Route: 048
     Dates: start: 20130830

REACTIONS (3)
  - Skin fibrosis [Recovered/Resolved with Sequelae]
  - Telangiectasia [Recovered/Resolved with Sequelae]
  - Dermatitis [Recovered/Resolved with Sequelae]

NARRATIVE: CASE EVENT DATE: 20130724
